FAERS Safety Report 6549578-2 (Version None)
Quarter: 2010Q1

REPORT INFORMATION
  Report Type: 
  Country: None (occurrence: None)
  Receive Date: 20100125
  Receipt Date: 20100121
  Transmission Date: 20100710
  Serious: Yes (Hospitalization)
  Sender: FDA-Public Use
  Company Number: US-AMGEN-KDC379595

PATIENT
  Sex: Female
  Weight: 62.6 kg

DRUGS (12)
  1. PANITUMUMAB [Suspect]
     Indication: COLORECTAL CANCER
     Route: 042
     Dates: start: 20091014
  2. IRINOTECAN HCL [Suspect]
     Route: 042
     Dates: start: 20091014
  3. 5-FU [Suspect]
     Route: 042
     Dates: start: 20091014
  4. 5-FU [Suspect]
     Route: 041
     Dates: start: 20091014
  5. DECADRON [Concomitant]
     Dates: start: 20081024
  6. ALOXI [Concomitant]
     Dates: start: 20081024
  7. ATENOLOL [Concomitant]
     Route: 048
  8. POTASSIUM CHLORIDE [Concomitant]
  9. MOTRIN [Concomitant]
  10. DOXYCYCLINE [Concomitant]
  11. NORVASC [Concomitant]
  12. LEUCOVORIN CALCIUM [Concomitant]
     Dates: start: 20091014

REACTIONS (2)
  - DIARRHOEA [None]
  - WEIGHT DECREASED [None]
